FAERS Safety Report 8425911-1 (Version None)
Quarter: 2012Q2

REPORT INFORMATION
  Report Type: 
  Country: None (occurrence: None)
  Receive Date: 20120611
  Receipt Date: 20120530
  Transmission Date: 20120825
  Serious: Yes (Hospitalization)
  Sender: FDA-Public Use
  Company Number: FR-NOVOPROD-353148

PATIENT
  Age: 90 Year
  Sex: Female

DRUGS (10)
  1. LEVEMIR [Suspect]
     Indication: TYPE 2 DIABETES MELLITUS
     Dosage: 20 IU, QD
     Route: 058
     Dates: start: 20120101, end: 20120419
  2. REPAGLINIDE [Concomitant]
     Indication: TYPE 2 DIABETES MELLITUS
     Dosage: 2 MG, QD
  3. JANUVIA [Concomitant]
     Dosage: UNK
     Dates: start: 20090101
  4. LANSOPRAZOLE [Concomitant]
     Dosage: UNK
  5. LASIX [Concomitant]
     Dosage: DOSE INCREASED
     Dates: start: 20120101
  6. ENALAPRIL MALEATE [Concomitant]
     Dosage: 5 MG
  7. LERCANIDIPINE [Concomitant]
     Dosage: UNK
  8. LASIX [Concomitant]
     Dosage: UNK
  9. ASPIRIN [Concomitant]
     Dosage: 75 MG
  10. BISOPROLOL FUMARATE [Concomitant]
     Dosage: 2.5 MG, QD
     Dates: start: 20120101

REACTIONS (2)
  - EOSINOPHILIA [None]
  - DERMATITIS EXFOLIATIVE [None]
